FAERS Safety Report 15855659 (Version 4)
Quarter: 2019Q2

REPORT INFORMATION
  Report Type: Report from Study
  Country: US (occurrence: US)
  Receive Date: 20190122
  Receipt Date: 20190605
  Transmission Date: 20190711
  Serious: Yes (Hospitalization)
  Sender: FDA-Public Use
  Company Number: US-ACTELION-A-NJ2017-157672

PATIENT
  Age: 29 Year
  Sex: Male
  Weight: 69.39 kg

DRUGS (3)
  1. OPSUMIT [Suspect]
     Active Substance: MACITENTAN
     Indication: PULMONARY ARTERIAL HYPERTENSION
     Dosage: 10 MG, QD
     Route: 048
     Dates: start: 20170524
  2. VELETRI [Suspect]
     Active Substance: EPOPROSTENOL
     Indication: PULMONARY ARTERIAL HYPERTENSION
     Dosage: 45.52 NG/KG, PER MIN
     Route: 042
  3. SILDENAFIL CITRATE. [Concomitant]
     Active Substance: SILDENAFIL CITRATE

REACTIONS (15)
  - Hyperhidrosis [Unknown]
  - Nausea [Unknown]
  - Feeling hot [Unknown]
  - Pain in jaw [Unknown]
  - Malaise [Unknown]
  - Headache [Not Recovered/Not Resolved]
  - Generalised erythema [Recovering/Resolving]
  - Diarrhoea [Unknown]
  - Dyspepsia [Unknown]
  - Vomiting [Unknown]
  - Device dislocation [Recovered/Resolved]
  - Flushing [Recovering/Resolving]
  - Atypical pneumonia [Unknown]
  - Haemoptysis [Unknown]
  - Chills [Unknown]

NARRATIVE: CASE EVENT DATE: 201805
